FAERS Safety Report 7175714-3 (Version None)
Quarter: 2010Q4

REPORT INFORMATION
  Report Type: 
  Country: None (occurrence: None)
  Receive Date: 20101220
  Receipt Date: 20100329
  Transmission Date: 20110411
  Serious: No
  Sender: FDA-Public Use
  Company Number: US-AMGEN-QUU402773

PATIENT

DRUGS (2)
  1. ENBREL [Suspect]
     Indication: RHEUMATOID ARTHRITIS
     Dosage: 50 MG, QWK
     Route: 058
     Dates: start: 20061211
  2. METHOTREXATE [Concomitant]
     Dosage: UNK UNK, UNK

REACTIONS (12)
  - ARTHRALGIA [None]
  - CATARACT [None]
  - DRUG INEFFECTIVE [None]
  - INJECTION SITE ERYTHEMA [None]
  - INJECTION SITE HAEMATOMA [None]
  - INJECTION SITE PAIN [None]
  - INJECTION SITE PRURITUS [None]
  - INJECTION SITE SWELLING [None]
  - PAIN IN EXTREMITY [None]
  - SCLERAL HAEMORRHAGE [None]
  - SENSATION OF HEAVINESS [None]
  - VITREOUS FLOATERS [None]
